FAERS Safety Report 7290817-0 (Version None)
Quarter: 2011Q1

REPORT INFORMATION
  Report Type: 
  Country: None (occurrence: None)
  Receive Date: 20110214
  Receipt Date: 20110204
  Transmission Date: 20110831
  Serious: Yes (Other)
  Sender: FDA-Public Use
  Company Number: CH-ASTRAZENECA-2011SE06313

PATIENT
  Age: 73 Year
  Sex: Male

DRUGS (21)
  1. EPINEPHRINE [Suspect]
     Indication: PROCEDURAL HYPOTENSION
     Dosage: 10 UG BOLUS DOSES REPEDLY INJECTED
  2. CAPTOPRIL [Suspect]
  3. ASPIRIN [Concomitant]
     Dosage: 100 MG
  4. AMARYL [Concomitant]
     Dosage: 2 MG
  5. ATACAND HCT [Suspect]
     Route: 048
  6. ATACAND HCT [Suspect]
     Dosage: DOSE RECEIVED ON THE DAY OF SURGERY
     Route: 048
  7. NORVASC [Suspect]
  8. EPHEDRINE [Concomitant]
  9. FENTANYL [Concomitant]
     Indication: ANAESTHESIA PROCEDURE
     Dosage: 1 UG/KG
     Route: 042
  10. SUCCINYLCHOLINE [Concomitant]
     Indication: MUSCLE RELAXANT THERAPY
     Dosage: 1 MG/KG
  11. PHENYLEPHRINE [Concomitant]
  12. MODURETIC 5-50 [Concomitant]
     Dosage: 50 MG HCT, 5MG AMILORID
  13. BETALOC-ZOK [Suspect]
     Route: 048
  14. PHENYLEPHRINE [Concomitant]
  15. ATENOLOL [Suspect]
  16. BETALOC-ZOK [Suspect]
     Dosage: DOSE RECEIVED ON THE DAY OF SURGERY
     Route: 048
  17. CHLORTHALIDONE [Suspect]
  18. SEVOFLURANE [Concomitant]
     Indication: ANAESTHESIA PROCEDURE
     Dosage: 0.5-1.5
  19. MIDAZOLAM [Concomitant]
     Route: 048
  20. THIOPENTAL SODIUM [Concomitant]
     Indication: ANAESTHESIA PROCEDURE
     Dosage: 4 MG/KG
     Route: 042
  21. EPHEDRINE [Concomitant]

REACTIONS (1)
  - BLINDNESS UNILATERAL [None]
